FAERS Safety Report 8767136 (Version 1)
Quarter: 2012Q4

REPORT INFORMATION
  Report Type: 
  Country: BR (occurrence: BR)
  Receive Date: 20120831
  Receipt Date: 20120831
  Transmission Date: 20130627
  Serious: Yes (Life-Threatening, Hospitalization, Disabling, Other)
  Sender: FDA-Public Use
  Company Number: BR-BAYER-2012-087125

PATIENT
  Age: 65 Year
  Sex: Male
  Weight: 52 kg

DRUGS (6)
  1. NEXAVAR [Suspect]
     Indication: HEPATIC NEOPLASM MALIGNANT
     Dosage: 200 mg, BID
     Route: 048
     Dates: start: 20120611
  2. LACTULOSE [Concomitant]
     Indication: CONSTIPATION
     Dosage: 5 to 10 ml, TID
     Route: 048
     Dates: start: 201205
  3. BENICAR [Concomitant]
     Indication: HYPERTENSION
     Dosage: 0.5 DF, QD
     Route: 048
     Dates: start: 20120822
  4. BENICAR [Concomitant]
     Indication: HYPERTENSION
     Dosage: 1.0 DF, QD
     Route: 048
  5. PROPRANOLOL [Concomitant]
     Indication: HYPERTENSION
     Dosage: 0.5 DF, BID
     Route: 048
  6. PANTOPRAZOLE [Concomitant]
     Indication: ABDOMINAL DISCOMFORT
     Dosage: 1 DF, QD
     Route: 048

REACTIONS (6)
  - Coma [Recovered/Resolved]
  - Rectal haemorrhage [Recovered/Resolved]
  - Confusional state [Recovering/Resolving]
  - Mobility decreased [Recovered/Resolved]
  - Vomiting [Recovered/Resolved]
  - Weight decreased [Not Recovered/Not Resolved]
